FAERS Safety Report 11362895 (Version 1)
Quarter: 2015Q3

REPORT INFORMATION
  Report Type: Spontaneous
  Country: US (occurrence: None)
  Receive Date: 20150807
  Receipt Date: 20150807
  Transmission Date: 20151125
  Serious: Yes (Other)
  Sender: FDA-Public Use
  Company Number: ADR-2015-01470

PATIENT
  Age: 27 Year
  Sex: Male

DRUGS (2)
  1. BACLOFEN INTRATHECAL 2,000MCG/ML [Suspect]
     Active Substance: BACLOFEN
     Indication: MUSCLE SPASTICITY
     Dosage: 480MCG/DAY
  2. BACLOFEN (ORAL) [Suspect]
     Active Substance: BACLOFEN

REACTIONS (1)
  - Autonomic nervous system imbalance [None]

NARRATIVE: CASE EVENT DATE: 20140128
